FAERS Safety Report 24062154 (Version 5)
Quarter: 2025Q4

REPORT INFORMATION
  Report Type: Report from Study
  Country: EU (occurrence: EU)
  Receive Date: 20240708
  Receipt Date: 20251121
  Transmission Date: 20260118
  Serious: Yes (Hospitalization)
  Sender: TAKEDA
  Company Number: EU-TAKEDA-2024TUS040892

PATIENT
  Age: 74 Year
  Sex: Female

DRUGS (5)
  1. TEDUGLUTIDE [Suspect]
     Active Substance: TEDUGLUTIDE
     Indication: Short-bowel syndrome
     Dosage: 0.2 MILLIGRAM, QD
  2. TEDUGLUTIDE [Suspect]
     Active Substance: TEDUGLUTIDE
     Dosage: 0.2 MILLILITER, QD
  3. TEDUGLUTIDE [Suspect]
     Active Substance: TEDUGLUTIDE
     Dosage: 0.2 MILLILITER, QD
  4. TEDUGLUTIDE [Suspect]
     Active Substance: TEDUGLUTIDE
     Dosage: 0.2 MILLILITER, QD
  5. TEDUGLUTIDE [Suspect]
     Active Substance: TEDUGLUTIDE
     Dosage: 0.2 MILLILITER, QD

REACTIONS (8)
  - Humerus fracture [Recovering/Resolving]
  - Fall [Recovering/Resolving]
  - Product dose omission in error [Recovered/Resolved]
  - Affective disorder [Recovering/Resolving]
  - Memory impairment [Recovering/Resolving]
  - Product availability issue [Recovered/Resolved]
  - Product dose omission issue [Recovered/Resolved]
  - Depression [Unknown]

NARRATIVE: CASE EVENT DATE: 20240629
